FAERS Safety Report 14522820 (Version 1)
Quarter: 2018Q1

REPORT INFORMATION
  Report Type: Report from Study
  Country: US (occurrence: US)
  Receive Date: 20180212
  Receipt Date: 20180212
  Transmission Date: 20180509
  Serious: Yes (Congenital Anomaly)
  Sender: FDA-Public Use
  Company Number: US-AMAG PHARMACEUTICALS, INC.-AMAG201703555

PATIENT

DRUGS (1)
  1. MAKENA [Suspect]
     Active Substance: HYDROXYPROGESTERONE CAPROATE
     Indication: FOETAL EXPOSURE DURING DELIVERY
     Dosage: 250 MG/ML, WEEKLY
     Route: 064
     Dates: start: 20171031, end: 20171031

REACTIONS (1)
  - Trisomy 21 [Unknown]

NARRATIVE: CASE EVENT DATE: 20171101
